FAERS Safety Report 9070384 (Version 2)
Quarter: 2013Q3

REPORT INFORMATION
  Report Type: Report from Study
  Country: FR (occurrence: FR)
  Receive Date: 20130215
  Receipt Date: 20130917
  Transmission Date: 20140515
  Serious: Yes (Hospitalization, Other)
  Sender: FDA-Public Use
  Company Number: FR-BAYER-2013-016756

PATIENT
  Age: 89 Year
  Sex: Female
  Weight: 60 kg

DRUGS (3)
  1. REGORAFENIB [Suspect]
     Indication: COLORECTAL CANCER METASTATIC
     Dosage: DAILY DOSE 160 MG
     Route: 048
     Dates: start: 20130121, end: 20130122
  2. PHENOBARBITAL [Concomitant]
     Indication: EPILEPSY
     Dosage: DAILY DOSE 100 MG
     Route: 048
  3. ESOMEPRAZOLE [Concomitant]
     Indication: GASTRITIS
     Dosage: DAILY DOSE 20 MG
     Route: 048

REACTIONS (3)
  - Delirium [Recovered/Resolved]
  - Posterior reversible encephalopathy syndrome [Recovered/Resolved]
  - Hypertensive crisis [None]
